FAERS Safety Report 8960540 (Version 1)
Quarter: 2012Q4

REPORT INFORMATION
  Report Type: Spontaneous
  Country: SE (occurrence: None)
  Receive Date: 20121203
  Receipt Date: 20121203
  Transmission Date: 20130627
  Serious: Yes (Other)
  Sender: FDA-Public Use
  Company Number: FI-2012-3917

PATIENT
  Sex: Female

DRUGS (2)
  1. NAVELBINE [Suspect]
     Indication: BREAST CANCER
     Route: 042
  2. NAVELBINE [Suspect]
     Indication: BREAST CANCER
     Route: 048

REACTIONS (5)
  - Dyspnoea [None]
  - Nausea [None]
  - Hypersensitivity [None]
  - Drug administration error [None]
  - Overdose [None]
